FAERS Safety Report 7625515-4 (Version None)
Quarter: 2011Q3

REPORT INFORMATION
  Report Type: 
  Country: None (occurrence: None)
  Receive Date: 20110713
  Receipt Date: 20110628
  Transmission Date: 20111222
  Serious: Yes (Hospitalization)
  Sender: FDA-Public Use
  Company Number: PTU-11-02

PATIENT
  Sex: Female

DRUGS (1)
  1. PROPYLTHIOURACIL [Suspect]
     Indication: BASEDOW'S DISEASE
     Dosage: 300MG/DAY

REACTIONS (5)
  - TACHYCARDIA [None]
  - MULTI-ORGAN FAILURE [None]
  - DEATH NEONATAL [None]
  - MATERNAL DRUGS AFFECTING FOETUS [None]
  - CONGENITAL HYPOTHYROIDISM [None]
